FAERS Safety Report 5912074-7 (Version None)
Quarter: 2008Q4

REPORT INFORMATION
  Report Type: 
  Country: None (occurrence: None)
  Receive Date: 20081006
  Receipt Date: 20081006
  Transmission Date: 20090506
  Serious: No
  Sender: FDA-Public Use
  Company Number: None

PATIENT
  Age: 62 Year
  Sex: Female
  Weight: 66.2252 kg

DRUGS (1)
  1. FOSAMAX PLUS D [Suspect]
     Indication: BONE SCAN
     Dosage: ONE TABLET ONCE A WEEK PO
     Route: 048
     Dates: start: 20080622, end: 20080824

REACTIONS (4)
  - ARTHRALGIA [None]
  - BONE PAIN [None]
  - MUSCULOSKELETAL PAIN [None]
  - PAIN IN EXTREMITY [None]
